FAERS Safety Report 17163789 (Version 1)
Quarter: 2019Q4

REPORT INFORMATION
  Report Type: Spontaneous
  Country: IT (occurrence: IT)
  Receive Date: 20191217
  Receipt Date: 20191217
  Transmission Date: 20200122
  Serious: Yes (Other)
  Sender: FDA-Public Use
  Company Number: NVSC2019IT066719

PATIENT
  Age: 37 Year
  Sex: Male
  Weight: 71 kg

DRUGS (3)
  1. GENVOYA [Interacting]
     Active Substance: COBICISTAT\ELVITEGRAVIR\EMTRICITABINE\TENOFOVIR ALAFENAMIDE FUMARATE
     Indication: HIV TEST POSITIVE
     Dosage: 1 DF, QD (150 MG/ 150 MG/ 200 MG/ 10 MG)
     Route: 048
     Dates: start: 20171015, end: 20190915
  2. BETAMETHASONE DIPROPIONATE. [Suspect]
     Active Substance: BETAMETHASONE DIPROPIONATE
     Indication: PSORIASIS
     Dosage: 1 DF, PRN
     Route: 061
     Dates: start: 20190315, end: 20190915
  3. SODIUM OXYBATE. [Interacting]
     Active Substance: SODIUM OXYBATE
     Indication: SUBSTANCE USE
     Dosage: 1 DF, PRN
     Route: 048
     Dates: start: 20180615, end: 20190915

REACTIONS (3)
  - Intentional product misuse [Not Recovered/Not Resolved]
  - Drug interaction [Not Recovered/Not Resolved]
  - Cushing^s syndrome [Not Recovered/Not Resolved]

NARRATIVE: CASE EVENT DATE: 20190915
